FAERS Safety Report 13667806 (Version 3)
Quarter: 2017Q3

REPORT INFORMATION
  Report Type: Report from Study
  Country: None (occurrence: US)
  Receive Date: 20170620
  Receipt Date: 20170919
  Transmission Date: 20171127
  Serious: Yes (Other)
  Sender: FDA-Public Use
  Company Number: US-ABBVIE-16K-163-1750363-00

PATIENT
  Age: 59 Year
  Sex: Female

DRUGS (4)
  1. DICYCLOMINE [Suspect]
     Active Substance: DICYCLOMINE HYDROCHLORIDE
     Indication: NAUSEA
     Route: 065
  2. HUMIRA [Suspect]
     Active Substance: ADALIMUMAB
     Route: 058
     Dates: start: 2016
  3. OSPHENA [Suspect]
     Active Substance: OSPEMIFENE
     Indication: ATROPHIC VULVOVAGINITIS
     Route: 065
  4. HUMIRA [Suspect]
     Active Substance: ADALIMUMAB
     Indication: CROHN^S DISEASE
     Route: 058
     Dates: start: 20160507, end: 2016

REACTIONS (12)
  - Stress [Unknown]
  - Alopecia [Unknown]
  - Crohn^s disease [Unknown]
  - Nausea [Unknown]
  - Abdominal pain [Unknown]
  - Lactose intolerance [Unknown]
  - Presyncope [Unknown]
  - Atrophic vulvovaginitis [Unknown]
  - Small intestinal obstruction [Unknown]
  - Fatigue [Not Recovered/Not Resolved]
  - Protein deficiency [Unknown]
  - Device issue [Unknown]

NARRATIVE: CASE EVENT DATE: 2016
